APPROVED DRUG PRODUCT: CETIRIZINE HYDROCHLORIDE HIVES RELIEF
Active Ingredient: CETIRIZINE HYDROCHLORIDE
Strength: 5MG
Dosage Form/Route: CAPSULE;ORAL
Application: N022429 | Product #003
Applicant: BIONPHARMA INC
Approved: Jul 23, 2009 | RLD: Yes | RS: No | Type: OTC